FAERS Safety Report 16027248 (Version 1)
Quarter: 2019Q1

REPORT INFORMATION
  Report Type: Spontaneous
  Country: CA (occurrence: CA)
  Receive Date: 20190303
  Receipt Date: 20190303
  Transmission Date: 20190418
  Serious: Yes (Life-Threatening)
  Sender: FDA-Public Use
  Company Number: CA-009507513-1902CAN012176

PATIENT
  Age: 23 Year
  Sex: Female
  Weight: 83.91 kg

DRUGS (1)
  1. NUVARING [Suspect]
     Active Substance: ETHINYL ESTRADIOL\ETONOGESTREL
     Indication: CONTRACEPTION
     Dosage: 1 EVERY THREE MONTHS
     Route: 067

REACTIONS (6)
  - Migraine [Recovered/Resolved]
  - Hyperacusis [Recovered/Resolved]
  - Visual impairment [Recovered/Resolved]
  - Headache [Recovered/Resolved]
  - Thrombosis [Recovered/Resolved]
  - Vulvovaginal mycotic infection [Recovered/Resolved]
